FAERS Safety Report 4501639-5 (Version None)
Quarter: 2004Q4

REPORT INFORMATION
  Report Type: 
  Country: None (occurrence: None)
  Receive Date: 20041115
  Receipt Date: 20041115
  Transmission Date: 20050328
  Serious: Yes (Other)
  Sender: FDA-Public Use
  Company Number: None

PATIENT
  Age: 52 Year
  Sex: Male

DRUGS (3)
  1. PAROXETINE HCL [Suspect]
     Indication: MAJOR DEPRESSION
     Dosage: 40 MGS 24.5 PO
     Route: 048
     Dates: start: 20030619
  2. ALPRAZALAM [Suspect]
     Indication: ANXIETY DISORDER
  3. LIMBITROL [Concomitant]

REACTIONS (1)
  - SKIN REACTION [None]
